FAERS Safety Report 21937979 (Version 1)
Quarter: 2023Q1

REPORT INFORMATION
  Report Type: Report from Study
  Country: US (occurrence: US)
  Receive Date: 20230201
  Receipt Date: 20230201
  Transmission Date: 20230417
  Serious: No
  Sender: FDA-Public Use
  Company Number: US-INCYTE CORPORATION-2021IN001895

PATIENT

DRUGS (2)
  1. PEMIGATINIB [Suspect]
     Active Substance: PEMIGATINIB
     Indication: Cholangiocarcinoma
     Dosage: 9 MILLIGRAM, QD 14 DAYS ON AND ONE WEEK OFF
     Route: 048
     Dates: start: 20210206
  2. PEMIGATINIB [Suspect]
     Active Substance: PEMIGATINIB
     Dosage: 9 MILLIGRAM
     Route: 048

REACTIONS (3)
  - Blood phosphorus decreased [Recovered/Resolved]
  - Constipation [Recovered/Resolved]
  - Fatigue [Unknown]

NARRATIVE: CASE EVENT DATE: 20210101
